FAERS Safety Report 9536588 (Version 3)
Quarter: 2013Q4

REPORT INFORMATION
  Report Type: Spontaneous
  Country: GB (occurrence: GB)
  Receive Date: 20130919
  Receipt Date: 20131216
  Transmission Date: 20140711
  Serious: Yes (Other)
  Sender: FDA-Public Use
  Company Number: GB-JNJFOC-20130906728

PATIENT
  Sex: Female

DRUGS (3)
  1. TOPAMAX [Suspect]
     Indication: MIGRAINE PROPHYLAXIS
     Route: 048
     Dates: start: 201212, end: 201306
  2. ZOPICLONE [Concomitant]
     Route: 065
  3. AMITRIPTYLINE [Concomitant]
     Indication: MIGRAINE
     Route: 065

REACTIONS (2)
  - Granuloma annulare [Unknown]
  - Thyroid cyst [Unknown]
